FAERS Safety Report 7013599-6 (Version None)
Quarter: 2010Q3

REPORT INFORMATION
  Report Type: 
  Country: None (occurrence: None)
  Receive Date: 20100924
  Receipt Date: 20100915
  Transmission Date: 20110219
  Serious: Yes (Other)
  Sender: FDA-Public Use
  Company Number: GXKR2010GR10574

PATIENT
  Age: 71 Year
  Sex: Female
  Weight: 97 kg

DRUGS (2)
  1. CARBOPLATIN [Suspect]
     Indication: HEAD AND NECK CANCER
     Dosage: 1 DF/DAY
     Route: 042
     Dates: start: 20100419
  2. ERBITUX [Suspect]
     Indication: HEAD AND NECK CANCER
     Dosage: 500 MG/M2 PER 2 WEEKS
     Route: 042
     Dates: start: 20100419

REACTIONS (2)
  - CHILLS [None]
  - PYREXIA [None]
